FAERS Safety Report 19786217 (Version 5)
Quarter: 2023Q2

REPORT INFORMATION
  Report Type: Spontaneous
  Country: GB (occurrence: GB)
  Receive Date: 20210903
  Receipt Date: 20230403
  Transmission Date: 20230721
  Serious: Yes (Other)
  Sender: FDA-Public Use
  Company Number: GB-AMGEN-GBRNI2018163308

PATIENT

DRUGS (33)
  1. NERATINIB [Suspect]
     Active Substance: NERATINIB
     Indication: Breast cancer
     Dosage: 336 MG, Q3WK
     Route: 042
     Dates: start: 20180925, end: 20200922
  2. NERATINIB [Suspect]
     Active Substance: NERATINIB
     Dosage: 378 MG,Q3WK
     Route: 042
     Dates: start: 20201013
  3. PERTUZUMAB [Suspect]
     Active Substance: PERTUZUMAB
     Indication: Breast cancer metastatic
     Dosage: 420 MG, 3/WEEK
     Route: 042
     Dates: start: 20160606
  4. ANASTROZOLE [Suspect]
     Active Substance: ANASTROZOLE
     Indication: Breast cancer metastatic
     Dosage: 1 MG, QD
     Route: 048
     Dates: start: 20170127
  5. ANASTROZOLE [Suspect]
     Active Substance: ANASTROZOLE
     Indication: Breast cancer
     Dosage: 378 MG, Q3WK
     Route: 042
     Dates: start: 20201013
  6. ANASTROZOLE [Suspect]
     Active Substance: ANASTROZOLE
     Dosage: 336 MG, Q3WK
     Route: 042
     Dates: start: 20180925, end: 20200922
  7. ANASTROZOLE [Suspect]
     Active Substance: ANASTROZOLE
     Dosage: 420 MG, Q3WK
     Route: 042
     Dates: start: 20160606
  8. ANASTROZOLE [Suspect]
     Active Substance: ANASTROZOLE
     Dosage: 840 MG, Q3WK
     Route: 042
     Dates: start: 20160510, end: 20160510
  9. ANASTROZOLE [Suspect]
     Active Substance: ANASTROZOLE
     Dosage: 120 MG Q3WK
     Route: 042
     Dates: start: 20160808
  10. ANASTROZOLE [Suspect]
     Active Substance: ANASTROZOLE
     Dosage: 130 MG, Q3WK
     Route: 042
     Dates: start: 20160511, end: 20160808
  11. ONTRUZANT [Suspect]
     Active Substance: TRASTUZUMAB-DTTB
     Indication: HER2 positive breast cancer
     Dosage: 336 MG, Q3WK
     Route: 041
     Dates: start: 20180915
  12. ONTRUZANT [Suspect]
     Active Substance: TRASTUZUMAB-DTTB
     Dosage: 336 MG, Q3WK
     Route: 041
     Dates: start: 20180925
  13. ONTRUZANT [Suspect]
     Active Substance: TRASTUZUMAB-DTTB
     Dosage: 378 MG, Q3WK
     Route: 041
     Dates: start: 20201013
  14. TRASTUZUMAB [Suspect]
     Active Substance: TRASTUZUMAB
     Indication: Breast cancer metastatic
     Dosage: 378 MG, Q3WK
     Route: 041
     Dates: start: 20201013
  15. TRASTUZUMAB [Suspect]
     Active Substance: TRASTUZUMAB
     Dosage: 336 MG, Q3WK
     Route: 041
     Dates: start: 20180925, end: 20200922
  16. TRASTUZUMAB [Suspect]
     Active Substance: TRASTUZUMAB
     Dosage: 388.5 MG, Q3WK
     Route: 042
     Dates: start: 20160718, end: 20160830
  17. TRASTUZUMAB [Suspect]
     Active Substance: TRASTUZUMAB
     Dosage: 367.5 MG, Q3WK
     Route: 042
     Dates: start: 20160920, end: 20170110
  18. TRASTUZUMAB [Suspect]
     Active Substance: TRASTUZUMAB
     Dosage: 525 MG, Q3WK
     Route: 042
     Dates: start: 20160510, end: 20160510
  19. TRASTUZUMAB [Suspect]
     Active Substance: TRASTUZUMAB
     Dosage: UNK
     Route: 042
     Dates: start: 20180510
  20. TRASTUZUMAB [Suspect]
     Active Substance: TRASTUZUMAB
     Dosage: 336 MG, Q3WK
     Route: 042
     Dates: start: 20170724, end: 20180904
  21. TRASTUZUMAB [Suspect]
     Active Substance: TRASTUZUMAB
     Dosage: 378 MG, Q3WK
     Route: 042
     Dates: start: 20160627, end: 20160627
  22. TRASTUZUMAB [Suspect]
     Active Substance: TRASTUZUMAB
     Dosage: 346.5 MG, Q3WK
     Route: 042
     Dates: start: 20170517, end: 20170703
  23. TRASTUZUMAB [Suspect]
     Active Substance: TRASTUZUMAB
     Dosage: 357 MG, Q3WK
     Route: 042
     Dates: start: 20170201, end: 20170426
  24. TRASTUZUMAB [Suspect]
     Active Substance: TRASTUZUMAB
     Dosage: 388.5 MG, Q3WK
     Route: 042
     Dates: start: 20160606, end: 20160606
  25. ACETAMINOPHEN [Concomitant]
     Active Substance: ACETAMINOPHEN
     Indication: Product used for unknown indication
     Dosage: UNK
     Route: 065
  26. PREGABALIN [Concomitant]
     Active Substance: PREGABALIN
     Indication: Product used for unknown indication
     Dosage: UNK
     Route: 065
  27. RAMIPRIL [Concomitant]
     Active Substance: RAMIPRIL
     Indication: Ejection fraction decreased
     Dosage: UNK
     Route: 065
  28. DOMPERIDONE [Concomitant]
     Active Substance: DOMPERIDONE
     Indication: Product used for unknown indication
     Dosage: UNK
     Route: 065
     Dates: start: 20191211
  29. IRON [Concomitant]
     Active Substance: IRON
     Indication: Product used for unknown indication
     Dosage: UNK
     Route: 065
     Dates: start: 20190612
  30. MORPHINE SULFATE [Concomitant]
     Active Substance: MORPHINE SULFATE
     Indication: Product used for unknown indication
     Dosage: 60 MG, QD
     Route: 048
  31. MORPHINE SULFATE [Concomitant]
     Active Substance: MORPHINE SULFATE
     Dosage: 120 MILLIGRAM
     Route: 048
  32. MORPHINE SULFATE [Concomitant]
     Active Substance: MORPHINE SULFATE
     Dosage: 20 MG, QD (1/DAY)
     Route: 065
  33. MORPHINE [Concomitant]
     Active Substance: MORPHINE
     Indication: Product used for unknown indication
     Dosage: 30 MG, QD
     Route: 048

REACTIONS (2)
  - Anaemia [Recovered/Resolved]
  - Ejection fraction decreased [Not Recovered/Not Resolved]

NARRATIVE: CASE EVENT DATE: 20181215
